FAERS Safety Report 8777262 (Version 2)
Quarter: 2012Q4

REPORT INFORMATION
  Report Type: Report from Study
  Country: FR (occurrence: FR)
  Receive Date: 20120911
  Receipt Date: 20120921
  Transmission Date: 20130627
  Serious: Yes (Disabling)
  Sender: FDA-Public Use
  Company Number: FR-AMGEN-FRANI2012054782

PATIENT
  Age: 78 Year
  Sex: Female

DRUGS (8)
  1. ROMIPLOSTIM [Suspect]
     Indication: IDIOPATHIC THROMBOCYTOPENIC PURPURA
     Dosage: 70 mug, UNK
     Route: 058
     Dates: start: 20120117
  2. CORTANCYL [Concomitant]
     Dosage: 10 mg, UNK
     Route: 048
     Dates: start: 20120321
  3. PLAQUENIL [Concomitant]
     Dosage: 400 mg, UNK
     Route: 048
     Dates: start: 201110
  4. LANTUS [Concomitant]
     Dosage: 20 IU, qd
  5. FLECAINE [Concomitant]
  6. CELECTOL [Concomitant]
     Dosage: UNK UNK, qd
  7. KENZEM [Concomitant]
  8. TAHOR [Concomitant]
     Dosage: 20 mg, UNK

REACTIONS (1)
  - Retinal vein thrombosis [Not Recovered/Not Resolved]
